FAERS Safety Report 23953198 (Version 1)
Quarter: 2024Q2

REPORT INFORMATION
  Report Type: Spontaneous
  Country: PT (occurrence: PT)
  Receive Date: 20240608
  Receipt Date: 20240608
  Transmission Date: 20240716
  Serious: Yes (Hospitalization)
  Sender: FDA-Public Use
  Company Number: PT-MLMSERVICE-20240523-PI075226-00125-1

PATIENT
  Age: 80 Year

DRUGS (1)
  1. DONEPEZIL [Suspect]
     Active Substance: DONEPEZIL\DONEPEZIL HYDROCHLORIDE
     Indication: Dementia
     Dosage: 10 MILLIGRAM, ONCE A DAY
     Route: 065

REACTIONS (1)
  - Stress cardiomyopathy [Recovered/Resolved]
